FAERS Safety Report 19990833 (Version 1)
Quarter: 2021Q4

REPORT INFORMATION
  Report Type: Spontaneous
  Country: US (occurrence: US)
  Receive Date: 20211025
  Receipt Date: 20211025
  Transmission Date: 20220303
  Serious: Yes (Hospitalization)
  Sender: FDA-Public Use
  Company Number: US-AUROBINDO-AUR-APL-2021-032800

PATIENT
  Age: 62 Year
  Sex: Male

DRUGS (1)
  1. CLOZAPINE [Suspect]
     Active Substance: CLOZAPINE
     Indication: Psychotic disorder
     Dosage: 450 MILLIGRAM, QHS
     Route: 048

REACTIONS (3)
  - Psychotic disorder [Unknown]
  - Mental disorder [Unknown]
  - Neutrophilia [Unknown]

NARRATIVE: CASE EVENT DATE: 20210722
